FAERS Safety Report 7985611-9 (Version None)
Quarter: 2011Q4

REPORT INFORMATION
  Report Type: 
  Country: None (occurrence: None)
  Receive Date: 20111216
  Receipt Date: 20111206
  Transmission Date: 20120403
  Serious: Yes (Other)
  Sender: FDA-Public Use
  Company Number: FR-JNJFOC-20111207151

PATIENT

DRUGS (47)
  1. DOXORUBICIN HCL [Suspect]
     Route: 042
  2. RITUXIMAB [Suspect]
     Route: 065
  3. ELDISINE [Suspect]
     Indication: DIFFUSE LARGE B-CELL LYMPHOMA
     Route: 065
  4. BLEOMYCIN SULFATE [Suspect]
     Route: 065
  5. BLEOMYCIN SULFATE [Suspect]
     Route: 065
  6. PREDNISONE [Suspect]
     Route: 065
  7. RITUXIMAB [Suspect]
     Indication: DIFFUSE LARGE B-CELL LYMPHOMA
     Route: 065
  8. METHOTREXATE [Suspect]
     Indication: DIFFUSE LARGE B-CELL LYMPHOMA
     Route: 042
  9. ETOPOSIDE [Suspect]
     Indication: DIFFUSE LARGE B-CELL LYMPHOMA
     Route: 065
  10. ETOPOSIDE [Suspect]
     Route: 065
  11. CYTARABINE [Suspect]
     Route: 058
  12. RITUXIMAB [Suspect]
     Route: 065
  13. CYCLOPHOSPHAMIDE [Suspect]
     Route: 065
  14. ELDISINE [Suspect]
     Route: 065
  15. RITUXIMAB [Suspect]
     Route: 065
  16. CYCLOPHOSPHAMIDE [Suspect]
     Route: 065
  17. METHOTREXATE [Suspect]
     Route: 037
  18. IFOSFAMIDE [Suspect]
     Route: 065
  19. CYTARABINE [Suspect]
     Indication: DIFFUSE LARGE B-CELL LYMPHOMA
     Route: 058
  20. DOXORUBICIN HCL [Suspect]
     Indication: DIFFUSE LARGE B-CELL LYMPHOMA
     Route: 042
  21. PREDNISONE [Suspect]
     Indication: DIFFUSE LARGE B-CELL LYMPHOMA
     Route: 065
  22. METHOTREXATE [Suspect]
     Route: 042
  23. ETOPOSIDE [Suspect]
     Route: 065
  24. IFOSFAMIDE [Suspect]
     Route: 065
  25. IFOSFAMIDE [Suspect]
     Route: 065
  26. DOXORUBICIN HCL [Suspect]
     Route: 042
  27. RITUXIMAB [Suspect]
     Route: 065
  28. RITUXIMAB [Suspect]
     Route: 065
  29. RITUXIMAB [Suspect]
     Route: 065
  30. RITUXIMAB [Suspect]
     Route: 065
  31. CYCLOPHOSPHAMIDE [Suspect]
     Indication: DIFFUSE LARGE B-CELL LYMPHOMA
     Route: 065
  32. ELDISINE [Suspect]
     Route: 065
  33. METHOTREXATE [Suspect]
     Indication: PROPHYLAXIS
     Route: 037
  34. METHOTREXATE [Suspect]
     Route: 037
  35. ETOPOSIDE [Suspect]
     Route: 065
  36. IFOSFAMIDE [Suspect]
     Indication: DIFFUSE LARGE B-CELL LYMPHOMA
     Route: 065
  37. BLEOMYCIN SULFATE [Suspect]
     Indication: DIFFUSE LARGE B-CELL LYMPHOMA
     Route: 065
  38. PREDNISONE [Suspect]
     Route: 065
  39. PREDNISONE [Suspect]
     Route: 065
  40. METHOTREXATE [Suspect]
     Route: 037
  41. LEUCOVORIN CALCIUM [Suspect]
     Indication: DIFFUSE LARGE B-CELL LYMPHOMA
     Route: 065
  42. DOXORUBICIN HCL [Suspect]
     Route: 042
  43. CYCLOPHOSPHAMIDE [Suspect]
     Route: 065
  44. ELDISINE [Suspect]
     Route: 065
  45. BLEOMYCIN SULFATE [Suspect]
     Route: 065
  46. PREDNISONE [Suspect]
     Route: 065
  47. FILGRASTIM [Suspect]
     Indication: DIFFUSE LARGE B-CELL LYMPHOMA
     Route: 058

REACTIONS (1)
  - BLOOD CREATININE INCREASED [None]
